FAERS Safety Report 9770742 (Version 1)
Quarter: 2013Q4

REPORT INFORMATION
  Report Type: Spontaneous
  Country: VN (occurrence: VN)
  Receive Date: 20131218
  Receipt Date: 20131218
  Transmission Date: 20140711
  Serious: Yes (Hospitalization)
  Sender: FDA-Public Use
  Company Number: VN-BAYER-2013-153524

PATIENT
  Age: 26 Year
  Sex: Female

DRUGS (3)
  1. ULTRAVIST [Suspect]
     Indication: COMPUTERISED TOMOGRAM ABDOMEN
     Dosage: 80 ML, ONCE
     Route: 042
     Dates: start: 20131031, end: 20131031
  2. ULTRAVIST [Suspect]
     Indication: LIVER DISORDER
  3. ULTRAVIST [Suspect]
     Indication: GALLBLADDER DISORDER

REACTIONS (3)
  - Fatigue [None]
  - Restlessness [None]
  - Pruritus generalised [None]
